FAERS Safety Report 5786535-8 (Version None)
Quarter: 2008Q2

REPORT INFORMATION
  Report Type: 
  Country: None (occurrence: None)
  Receive Date: 20080624
  Receipt Date: 20080602
  Transmission Date: 20081010
  Serious: No
  Sender: FDA-Public Use
  Company Number: US-BOEHRINGER INGELHEIM GMBH, GERMANY-2008-BP-08555BP

PATIENT
  Age: 76 Year
  Sex: Male

DRUGS (8)
  1. FLOMAX [Suspect]
     Indication: BENIGN PROSTATIC HYPERPLASIA
     Route: 048
     Dates: start: 20080401
  2. NEURONTIN [Suspect]
     Indication: DIABETIC NEUROPATHY
  3. ARICEPT [Concomitant]
  4. NAMENDA [Concomitant]
  5. METFORMIN HCL [Concomitant]
  6. GLYBURIDE [Concomitant]
  7. LORAZEPAM [Concomitant]
  8. COUGH SYRUP [Concomitant]

REACTIONS (1)
  - DIPLOPIA [None]
